FAERS Safety Report 15110103 (Version 2)
Quarter: 2019Q3

REPORT INFORMATION
  Report Type: Spontaneous
  Country: US (occurrence: US)
  Receive Date: 20180705
  Receipt Date: 20190812
  Transmission Date: 20191004
  Serious: No
  Sender: FDA-Public Use
  Company Number: US-TAKEDA-2018TUS021036

PATIENT
  Sex: Female

DRUGS (3)
  1. TRINTELLIX [Suspect]
     Active Substance: VORTIOXETINE HYDROBROMIDE
     Indication: ANXIETY
     Dosage: 10 MILLIGRAM
     Route: 048
     Dates: start: 2016
  2. TRINTELLIX [Suspect]
     Active Substance: VORTIOXETINE HYDROBROMIDE
     Dosage: 30 MILLIGRAM, QD
     Route: 048
     Dates: start: 2017
  3. TRINTELLIX [Suspect]
     Active Substance: VORTIOXETINE HYDROBROMIDE
     Indication: EATING DISORDER
     Dosage: 25 MILLIGRAM, QD
     Route: 048

REACTIONS (10)
  - Headache [Not Recovered/Not Resolved]
  - Pain [Not Recovered/Not Resolved]
  - Orgasm abnormal [Not Recovered/Not Resolved]
  - Off label use [Unknown]
  - Libido decreased [Not Recovered/Not Resolved]
  - Cough [Not Recovered/Not Resolved]
  - Overdose [Unknown]
  - Rhinorrhoea [Not Recovered/Not Resolved]
  - Anxiety [Not Recovered/Not Resolved]
  - Dizziness [Not Recovered/Not Resolved]
